FAERS Safety Report 10726153 (Version 1)
Quarter: 2015Q1

REPORT INFORMATION
  Report Type: Spontaneous
  Country: KR (occurrence: None)
  Receive Date: 20150116
  Receipt Date: 20150116
  Transmission Date: 20150721
  Serious: Yes (Hospitalization)
  Sender: FDA-Public Use
  Company Number: INT_00611_2015

PATIENT
  Age: 64 Year
  Sex: Female

DRUGS (4)
  1. GEMCITABINE [Suspect]
     Active Substance: GEMCITABINE\GEMCITABINE HYDROCHLORIDE
     Indication: LUNG ADENOCARCINOMA STAGE IV
     Dosage: 1X3 WEEKS
  2. SIMVASTATIN (SIMVASTATIN) [Suspect]
     Active Substance: SIMVASTATIN
     Indication: DYSLIPIDAEMIA
     Dates: start: 2006
  3. SIROLIMUS. [Suspect]
     Active Substance: SIROLIMUS
     Indication: IMMUNOSUPPRESSANT DRUG THERAPY
  4. CISPLATIN. [Suspect]
     Active Substance: CISPLATIN
     Indication: LUNG ADENOCARCINOMA STAGE IV

REACTIONS (13)
  - Rhabdomyolysis [None]
  - Aspartate aminotransferase increased [None]
  - Septic shock [None]
  - Alanine aminotransferase increased [None]
  - Escherichia sepsis [None]
  - Hypophagia [None]
  - Disseminated intravascular coagulation [None]
  - Pulmonary oedema [None]
  - Dyspnoea exertional [None]
  - Acute kidney injury [None]
  - Chest discomfort [None]
  - Urinary tract infection [None]
  - Drug interaction [None]
